FAERS Safety Report 7234213-0 (Version None)
Quarter: 2011Q1

REPORT INFORMATION
  Report Type: 
  Country: None (occurrence: None)
  Receive Date: 20110119
  Receipt Date: 20110113
  Transmission Date: 20110831
  Serious: Yes (Hospitalization)
  Sender: FDA-Public Use
  Company Number: CH-EISAI INC-E2020-08365-SPO-CH

PATIENT
  Sex: Female
  Weight: 61 kg

DRUGS (14)
  1. CLAMOXYL [Suspect]
     Route: 048
     Dates: start: 20101030, end: 20101105
  2. KLACID [Suspect]
     Dosage: 1000 MG
     Route: 048
     Dates: start: 20101030, end: 20101105
  3. NEXIUM [Concomitant]
     Dosage: 40 MG
     Route: 048
     Dates: start: 20101025
  4. PIROXICAM [Suspect]
     Dosage: 20 MG
     Dates: start: 20100601
  5. TOLVON [Suspect]
     Dosage: 15 MG
     Route: 048
     Dates: start: 20101025, end: 20101105
  6. DAFALGAN [Concomitant]
     Dosage: 3 G
     Route: 048
     Dates: start: 20101021
  7. DAFALGAN [Concomitant]
     Dosage: 4 G
     Route: 048
     Dates: end: 20101020
  8. REMINYL [Concomitant]
     Dosage: 8 MG
     Dates: start: 20110107
  9. ARICEPT [Suspect]
     Route: 048
     Dates: start: 20101025, end: 20101108
  10. EUTHYROX [Concomitant]
     Dosage: 100 UG
  11. DALMADROM [Concomitant]
     Dosage: 30 MG
     Route: 048
  12. ARICEPT [Suspect]
     Route: 048
     Dates: start: 20100601, end: 20101024
  13. TOLVON [Suspect]
     Indication: DEPRESSION
     Dosage: 30 MG
     Route: 048
     Dates: start: 20100601, end: 20101024
  14. TOREM [Concomitant]
     Dosage: 10 MG
     Route: 048
     Dates: end: 20101021

REACTIONS (4)
  - RASH MACULO-PAPULAR [None]
  - DRUG LEVEL INCREASED [None]
  - WEIGHT DECREASED [None]
  - GASTRIC ULCER HELICOBACTER [None]
